FAERS Safety Report 8374492-X (Version None)
Quarter: 2012Q2

REPORT INFORMATION
  Report Type: 
  Country: None (occurrence: None)
  Receive Date: 20120521
  Receipt Date: 20120305
  Transmission Date: 20120825
  Serious: No
  Sender: FDA-Public Use
  Company Number: US-MYLANLABS-2012S1004865

PATIENT
  Age: 69 Year
  Sex: Female

DRUGS (6)
  1. SINGULAIR [Concomitant]
  2. VALACYCLOVIR HYDROCHLORIDE [Suspect]
     Indication: HERPES ZOSTER
     Route: 048
     Dates: start: 20120228
  3. EVISTA [Concomitant]
  4. THYROID [Concomitant]
  5. VITAMIN TAB [Concomitant]
  6. ANTIHISTAMINES [Concomitant]

REACTIONS (2)
  - ABDOMINAL PAIN [None]
  - DIARRHOEA [None]
